FAERS Safety Report 8484466-6 (Version None)
Quarter: 2012Q3

REPORT INFORMATION
  Report Type: 
  Country: None (occurrence: None)
  Receive Date: 20120703
  Receipt Date: 20120628
  Transmission Date: 20120928
  Serious: Yes (Hospitalization)
  Sender: FDA-Public Use
  Company Number: PHHY2012AR056238

PATIENT
  Sex: Male

DRUGS (2)
  1. DIOVAN [Suspect]
     Indication: HYPERTENSION
     Dosage: 160 MG, BID
     Dates: start: 20110801
  2. DIOVAN [Suspect]
     Indication: ARRHYTHMIA
     Dosage: 80 MG, DAILY
     Dates: start: 20120201

REACTIONS (4)
  - HYPERTENSION [None]
  - FLUID RETENTION [None]
  - EMOTIONAL DISTRESS [None]
  - COAGULOPATHY [None]
